FAERS Safety Report 4366459-3 (Version None)
Quarter: 2004Q2

REPORT INFORMATION
  Report Type: 
  Country: None (occurrence: None)
  Receive Date: 20040527
  Receipt Date: 20040406
  Transmission Date: 20050107
  Serious: No
  Sender: FDA-Public Use
  Company Number: US-BRISTOL-MYERS SQUIBB COMPANY-12553434

PATIENT
  Age: 46 Year
  Sex: Male

DRUGS (4)
  1. ERBITUX [Suspect]
     Indication: COLON CANCER METASTATIC
     Route: 042
     Dates: start: 20040326, end: 20040326
  2. DEXAMETHASONE [Concomitant]
     Indication: PREMEDICATION
     Route: 048
     Dates: start: 20040326, end: 20040326
  3. ANZEMET [Concomitant]
     Indication: PREMEDICATION
  4. BENADRYL [Concomitant]
     Indication: PREMEDICATION
     Dosage: ADMINISTERED 50 MG IV ON 01-APR-2004 ALSO
     Route: 042

REACTIONS (2)
  - RASH PRURITIC [None]
  - RASH PUSTULAR [None]
